FAERS Safety Report 8175922-9 (Version None)
Quarter: 2012Q1

REPORT INFORMATION
  Report Type: 
  Country: None (occurrence: None)
  Receive Date: 20120301
  Receipt Date: 20120223
  Transmission Date: 20120608
  Serious: No
  Sender: FDA-Public Use
  Company Number: US-PFIZER INC-2012050949

PATIENT
  Sex: Female

DRUGS (2)
  1. GLUCOTROL [Suspect]
     Dosage: 5 MG, DAILY
  2. GLUCOPHAGE [Suspect]
     Dosage: 500 MG, 2X/DAY

REACTIONS (1)
  - DRUG INEFFECTIVE [None]
